FAERS Safety Report 20494788 (Version 1)
Quarter: 2022Q1

REPORT INFORMATION
  Report Type: Spontaneous
  Country: CA (occurrence: CA)
  Receive Date: 20220221
  Receipt Date: 20220221
  Transmission Date: 20220423
  Serious: No
  Sender: FDA-Public Use
  Company Number: CA-USP-000340

PATIENT
  Sex: Female

DRUGS (1)
  1. NITRO-DUR [Suspect]
     Active Substance: NITROGLYCERIN
     Indication: Product used for unknown indication
     Dosage: 0.4 MG/HOUR
     Route: 062
     Dates: start: 20220128

REACTIONS (2)
  - Dizziness [Unknown]
  - Medication error [Unknown]

NARRATIVE: CASE EVENT DATE: 20220128
